FAERS Safety Report 8150924-7 (Version None)
Quarter: 2012Q1

REPORT INFORMATION
  Report Type: 
  Country: None (occurrence: None)
  Receive Date: 20120220
  Receipt Date: 20120210
  Transmission Date: 20120608
  Serious: Yes (Other)
  Sender: FDA-Public Use
  Company Number: PL-ABBOTT-12P-129-0904273-00

PATIENT
  Age: 56 Year
  Sex: Female

DRUGS (10)
  1. HYDROXYZINE [Suspect]
     Indication: PROFOUND MENTAL RETARDATION
     Dosage: DAILY DOSE: 75MG
     Route: 048
     Dates: start: 20110801, end: 20111201
  2. TEGRETOL [Suspect]
     Indication: PROFOUND MENTAL RETARDATION
     Dosage: DAILY DOSE: 400MG
     Route: 048
     Dates: start: 20110801, end: 20111201
  3. BEMECOR [Concomitant]
     Indication: PRODUCT USED FOR UNKNOWN INDICATION
     Dates: end: 20111201
  4. PRIDINOL [Suspect]
     Indication: PROFOUND MENTAL RETARDATION
     Dosage: DAILY DOSE: 5MG
     Route: 048
     Dates: start: 20110801, end: 20111201
  5. THEOPHYLLINE [Concomitant]
     Indication: PRODUCT USED FOR UNKNOWN INDICATION
     Dates: end: 20111201
  6. HALOPERIDOL [Suspect]
     Indication: PROFOUND MENTAL RETARDATION
     Dosage: DAILY DOSE: 3ML
     Route: 048
     Dates: start: 20110801, end: 20111201
  7. DEPAKENE [Suspect]
     Indication: PROFOUND MENTAL RETARDATION
     Dosage: DAILY DOSE: 900MG
     Route: 048
     Dates: start: 20110801
  8. TISERCIN [Suspect]
     Indication: PROFOUND MENTAL RETARDATION
     Dosage: DAILY DOSE: 175MG
     Route: 048
     Dates: start: 20110801
  9. CARVEDILOL [Concomitant]
     Indication: PRODUCT USED FOR UNKNOWN INDICATION
  10. FUROSEMIDE [Concomitant]
     Indication: PRODUCT USED FOR UNKNOWN INDICATION

REACTIONS (6)
  - EYE DISORDER [None]
  - DECREASED EYE CONTACT [None]
  - MIOSIS [None]
  - INSOMNIA [None]
  - HYPERTONIA [None]
  - TREMOR [None]
